FAERS Safety Report 9204210 (Version 1)
Quarter: 2013Q1

REPORT INFORMATION
  Report Type: Spontaneous
  Country: US (occurrence: None)
  Receive Date: 20120709
  Receipt Date: 20120709
  Transmission Date: 20140127
  Serious: Yes (Other)
  Sender: FDA-Public Use
  Company Number: PHEH2012US009716

PATIENT
  Age: 79 Year
  Sex: Male

DRUGS (1)
  1. GLEEVEC (IMATINIB) UNKNOWN [Suspect]
     Route: 048
     Dates: start: 20120309, end: 20120418

REACTIONS (9)
  - Bone marrow failure [None]
  - Musculoskeletal discomfort [None]
  - Arthritis [None]
  - Pain in extremity [None]
  - Nausea [None]
  - Appetite disorder [None]
  - Muscular weakness [None]
  - Full blood count decreased [None]
  - Arthralgia [None]
